FAERS Safety Report 24603197 (Version 1)
Quarter: 2024Q4

REPORT INFORMATION
  Report Type: Spontaneous
  Country: US (occurrence: None)
  Receive Date: 20241108
  Receipt Date: 20241108
  Transmission Date: 20250115
  Serious: No
  Sender: Public
  Company Number: None

PATIENT
  Age: 49 Year
  Sex: Male

DRUGS (1)
  1. MUPIROCIN [Suspect]
     Active Substance: MUPIROCIN
     Indication: Hidradenitis
     Dosage: APPLY  TO OPEN SPOTS ON GROIN THREE A DAY FOR 5 DAYS AS NEEDED FOR FLARES;?
     Dates: start: 202410

REACTIONS (1)
  - Hospitalisation [None]
